FAERS Safety Report 14073985 (Version 1)
Quarter: 2017Q4

REPORT INFORMATION
  Report Type: Spontaneous
  Country: FR (occurrence: FR)
  Receive Date: 20171011
  Receipt Date: 20171011
  Transmission Date: 20180321
  Serious: Yes (Hospitalization, Other)
  Sender: FDA-Public Use
  Company Number: FR-PFIZER INC-2017429095

PATIENT
  Age: 32 Year
  Sex: Female

DRUGS (6)
  1. COCAINE [Suspect]
     Active Substance: COCAINE
     Dosage: UNK
     Route: 045
  2. SERESTA [Suspect]
     Active Substance: OXAZEPAM
     Dosage: UNK
  3. TERCIAN /00759301/ [Suspect]
     Active Substance: CYAMEMAZINE
     Dosage: 50 MG, DAILY
     Route: 048
  4. XANAX [Suspect]
     Active Substance: ALPRAZOLAM
     Dosage: 4 UP TO 5 DF DAILY
     Route: 048
  5. HEROIN [Suspect]
     Active Substance: DIAMORPHINE
     Dosage: UNK
  6. CANNABIS [Suspect]
     Active Substance: CANNABIS SATIVA SUBSP. INDICA TOP
     Dosage: UNK

REACTIONS (4)
  - Anxiety [Unknown]
  - Drug abuse [Unknown]
  - Paranoia [Unknown]
  - Drug dependence [Not Recovered/Not Resolved]
